FAERS Safety Report 15738492 (Version 1)
Quarter: 2018Q4

REPORT INFORMATION
  Report Type: Spontaneous
  Country: US (occurrence: US)
  Receive Date: 20181219
  Receipt Date: 20181219
  Transmission Date: 20190205
  Serious: No
  Sender: FDA-Public Use
  Company Number: US-DRREDDYS-USA/USA/18/0098572

PATIENT
  Age: 76 Year
  Sex: Female
  Weight: 50.9 kg

DRUGS (2)
  1. INSULIN [Concomitant]
     Active Substance: INSULIN NOS
     Indication: DIABETES MELLITUS
     Route: 065
  2. NICOTINE. [Suspect]
     Active Substance: NICOTINE
     Indication: SMOKING CESSATION THERAPY
     Route: 062

REACTIONS (5)
  - Treatment noncompliance [Unknown]
  - Product adhesion issue [Unknown]
  - Nicotine dependence [Unknown]
  - Product dose omission [Unknown]
  - Overdose [Unknown]
